FAERS Safety Report 7992370-2 (Version None)
Quarter: 2011Q4

REPORT INFORMATION
  Report Type: 
  Country: None (occurrence: None)
  Receive Date: 20111219
  Receipt Date: 20110221
  Transmission Date: 20120403
  Serious: No
  Sender: FDA-Public Use
  Company Number: US-ASTRAZENECA-2011SE09758

PATIENT
  Age: 48 Year
  Sex: Male
  Weight: 117.9 kg

DRUGS (4)
  1. CRESTOR [Suspect]
     Route: 048
     Dates: start: 20110201
  2. PLAVIX [Concomitant]
  3. LIPITOR [Concomitant]
  4. VARIOUS OTHER MEDICATIONS [Concomitant]

REACTIONS (2)
  - HYPOAESTHESIA [None]
  - PAIN IN EXTREMITY [None]
